FAERS Safety Report 17768386 (Version 2)
Quarter: 2020Q3

REPORT INFORMATION
  Report Type: Report from Study
  Country: None (occurrence: US)
  Receive Date: 20200512
  Receipt Date: 20200901
  Transmission Date: 20201102
  Serious: Yes (Hospitalization)
  Sender: FDA-Public Use
  Company Number: US-ABBVIE-20K-163-3385933-00

PATIENT
  Sex: Female

DRUGS (3)
  1. VENCLEXTA [Suspect]
     Active Substance: VENETOCLAX
     Indication: PLASMA CELL MYELOMA
     Route: 048
     Dates: start: 20200206, end: 2020
  2. VENCLEXTA [Suspect]
     Active Substance: VENETOCLAX
     Route: 048
     Dates: start: 2020, end: 2020
  3. VENCLEXTA [Suspect]
     Active Substance: VENETOCLAX
     Route: 048
     Dates: start: 2020

REACTIONS (8)
  - Decreased activity [Unknown]
  - Dehydration [Unknown]
  - Cystitis [Unknown]
  - Kidney infection [Unknown]
  - Blood potassium decreased [Unknown]
  - Alopecia [Unknown]
  - Blood creatine abnormal [Unknown]
  - Blood calcium abnormal [Unknown]

NARRATIVE: CASE EVENT DATE: 2020
